FAERS Safety Report 16493873 (Version 1)
Quarter: 2019Q2

REPORT INFORMATION
  Report Type: Spontaneous
  Country: US (occurrence: US)
  Receive Date: 20190628
  Receipt Date: 20190628
  Transmission Date: 20190711
  Serious: No
  Sender: FDA-Public Use
  Company Number: US-TEVA-2019-US-1071150

PATIENT
  Sex: Female

DRUGS (1)
  1. AUSTEDO [Suspect]
     Active Substance: DEUTETRABENAZINE
     Dosage: THERAPY STOP: WEEK OF 10JUN2019
     Route: 065
     Dates: start: 2019, end: 201906

REACTIONS (2)
  - Drug ineffective [Unknown]
  - Dysphemia [Unknown]
